FAERS Safety Report 15106059 (Version 4)
Quarter: 2018Q3

REPORT INFORMATION
  Report Type: Spontaneous
  Country: CH (occurrence: CH)
  Receive Date: 20180704
  Receipt Date: 20180814
  Transmission Date: 20181010
  Serious: Yes (Hospitalization)
  Sender: FDA-Public Use
  Company Number: CH-TEVA-2018-CH-917172

PATIENT
  Age: 55 Year
  Sex: Male
  Weight: 84 kg

DRUGS (16)
  1. CLOPIN ECO 25 MG [Concomitant]
     Indication: SCHIZOAFFECTIVE DISORDER
     Dosage: 25 MILLIGRAM DAILY; LONG TERM TREATMENT
     Route: 048
  2. FLOXYFRAL 100MG [Concomitant]
     Indication: SCHIZOAFFECTIVE DISORDER
     Dosage: 1.5 PER DAY; LONG TERM TREATMENT
     Route: 065
  3. NEXIUM MUPS 20 MG [Concomitant]
     Dosage: 40 MILLIGRAM DAILY; LONG TERM TREATMENT
     Route: 048
  4. CLOPIN ECO 100MG [Concomitant]
     Indication: SCHIZOAFFECTIVE DISORDER
     Dosage: 200 MILLIGRAM DAILY; LONG TERM TREATMENT
     Route: 048
  5. MOVICOL [Concomitant]
     Active Substance: POLYETHYLENE GLYCOL 3350\POTASSIUM CHLORIDE\SODIUM BICARBONATE\SODIUM CHLORIDE
     Indication: CONSTIPATION
     Dosage: 1 ML DAILY;
     Route: 048
  6. VITAMIN D3 STREULI [Concomitant]
     Active Substance: CHOLECALCIFEROL
     Dosage: .8 ML DAILY;
     Route: 048
  7. TRAMADOL?MEPHA FLASCHE MIT DOSIERPUMPE [Suspect]
     Active Substance: TRAMADOL
     Indication: ATRIAL FIBRILLATION
     Dosage: DOSAGE UNIT WAS CHANGED BACK FROM ML TO PUMPS (1 ML = 100 MG = 8 PUMPS, THEREFORE 16?16?16).
     Route: 065
  8. FRAGMIN 5000 [Concomitant]
     Route: 058
  9. TRAMADOL?MEPHA FLASCHE MIT DOSIERPUMPE [Suspect]
     Active Substance: TRAMADOL
     Indication: CRANIOCEREBRAL INJURY
     Dosage: 6 ML DAILY; 2 ML CORRESPOND TO 200 MG TRAMADOL; THE TOTAL DAILY DOSE WAS 600 MG (6 ML).
     Route: 065
  10. TRAMADOL?MEPHA FLASCHE MIT DOSIERPUMPE [Suspect]
     Active Substance: TRAMADOL
     Indication: CONSTIPATION
     Dosage: 500 MILLIGRAM DAILY; DOSE REDUCED TO A DAILY DOSE OF 500 MG (8?16?16).
     Route: 065
     Dates: start: 20171109, end: 20171230
  11. TRAMADOL?MEPHA FLASCHE MIT DOSIERPUMPE [Suspect]
     Active Substance: TRAMADOL
     Indication: SCHIZOAFFECTIVE DISORDER
     Dosage: 75 MILLIGRAM DAILY; 2 PUMPS (1 PRESS OF NOZZLE = 1 PUMP) THREE TIMES A DAY; DAILY DOSE 75 MG.
     Route: 065
     Dates: start: 20171109
  12. TRAMADOL?MEPHA FLASCHE MIT DOSIERPUMPE [Suspect]
     Active Substance: TRAMADOL
     Indication: BLOOD PRESSURE MEASUREMENT
  13. ORFIRIL 300 MG SIRUP [Concomitant]
     Indication: CRANIOCEREBRAL INJURY
     Dosage: 2.5 MILLIGRAM DAILY;
     Route: 048
  14. CONCOR 5MG [Concomitant]
     Indication: ATRIAL FIBRILLATION
     Dosage: 2.5 MILLIGRAM DAILY; 0.5 PER DAY
     Route: 048
  15. CONCOR 5MG [Concomitant]
     Indication: BLOOD PRESSURE MEASUREMENT
  16. TORASEMIND 10 MG [Concomitant]
     Dosage: 10 MILLIGRAM DAILY; LONG TERM TREATMENT
     Route: 048

REACTIONS (2)
  - Drug prescribing error [Unknown]
  - Toxicity to various agents [Recovered/Resolved]

NARRATIVE: CASE EVENT DATE: 20171230
